FAERS Safety Report 11999147 (Version 3)
Quarter: 2016Q1

REPORT INFORMATION
  Report Type: Spontaneous
  Country: US (occurrence: US)
  Receive Date: 20160204
  Receipt Date: 20160311
  Transmission Date: 20160526
  Serious: No
  Sender: FDA-Public Use
  Company Number: US-009507513-1602USA002136

PATIENT
  Sex: Female

DRUGS (2)
  1. NEXPLANON [Suspect]
     Active Substance: ETONOGESTREL
     Dosage: UNK
     Route: 059
     Dates: start: 20160114
  2. NEXPLANON [Suspect]
     Active Substance: ETONOGESTREL
     Dosage: UNK
     Route: 059
     Dates: end: 20160114

REACTIONS (6)
  - Implant site irritation [Unknown]
  - Implant site pain [Unknown]
  - Device dislocation [Not Recovered/Not Resolved]
  - Implant site warmth [Unknown]
  - Implant site swelling [Recovered/Resolved]
  - Implant site erythema [Recovered/Resolved]

NARRATIVE: CASE EVENT DATE: 2016
